FAERS Safety Report 16652293 (Version 1)
Quarter: 2019Q3

REPORT INFORMATION
  Report Type: Spontaneous
  Country: CA (occurrence: CA)
  Receive Date: 20190731
  Receipt Date: 20190731
  Transmission Date: 20191004
  Serious: Yes (Disabling)
  Sender: FDA-Public Use
  Company Number: CA-SA-2019SA204179

PATIENT
  Sex: Female

DRUGS (10)
  1. CELEBREX [Concomitant]
     Active Substance: CELECOXIB
  2. PREGABALIN. [Suspect]
     Active Substance: PREGABALIN
  3. SULFASALAZINE. [Suspect]
     Active Substance: SULFASALAZINE
  4. PLAQUENIL [Suspect]
     Active Substance: HYDROXYCHLOROQUINE SULFATE
  5. ARAVA [Suspect]
     Active Substance: LEFLUNOMIDE
  6. METHOTREXATE. [Suspect]
     Active Substance: METHOTREXATE
  7. HUMIRA [Suspect]
     Active Substance: ADALIMUMAB
     Route: 058
  8. BACLOFEN. [Suspect]
     Active Substance: BACLOFEN
  9. MELOXICAM. [Concomitant]
     Active Substance: MELOXICAM
  10. DULOXETINE HYDROCHLORIDE. [Suspect]
     Active Substance: DULOXETINE HYDROCHLORIDE

REACTIONS (4)
  - Arthralgia [Unknown]
  - Stomatitis [Unknown]
  - Abdominal discomfort [Unknown]
  - Nervous system injury [Unknown]
